FAERS Safety Report 16118296 (Version 21)
Quarter: 2021Q2

REPORT INFORMATION
  Report Type: Spontaneous
  Country: US (occurrence: US)
  Receive Date: 20190326
  Receipt Date: 20210504
  Transmission Date: 20210716
  Serious: Yes (Other)
  Sender: FDA-Public Use
  Company Number: US-PFIZER INC-2019130966

PATIENT
  Age: 39 Year
  Sex: Female
  Weight: 152 kg

DRUGS (4)
  1. PREGABALIN. [Concomitant]
     Active Substance: PREGABALIN
     Dosage: 75 MG, 1X/DAY (AT BEDTIME)
  2. LYRICA [Suspect]
     Active Substance: PREGABALIN
     Indication: PAIN
     Dosage: 150 MG, 1X/DAY
     Route: 048
  3. LYRICA [Suspect]
     Active Substance: PREGABALIN
     Indication: MULTIPLE SCLEROSIS
     Dosage: 75 MG, 1X/DAY (AT BEDTIME)
     Route: 048
  4. LYRICA [Suspect]
     Active Substance: PREGABALIN
     Dosage: 75 MG

REACTIONS (15)
  - Cerebrovascular accident [Unknown]
  - Drug effective for unapproved indication [Unknown]
  - Illness [Unknown]
  - Impaired driving ability [Unknown]
  - Stress [Unknown]
  - Vision blurred [Unknown]
  - Atypical pneumonia [Unknown]
  - Off label use [Unknown]
  - Decreased immune responsiveness [Unknown]
  - Nasopharyngitis [Unknown]
  - Eye irritation [Unknown]
  - Seizure [Unknown]
  - Pain in extremity [Unknown]
  - Fatigue [Unknown]
  - Burning sensation [Unknown]

NARRATIVE: CASE EVENT DATE: 2020
